FAERS Safety Report 18170890 (Version 1)
Quarter: 2020Q3

REPORT INFORMATION
  Report Type: Spontaneous
  Country: GB (occurrence: GB)
  Receive Date: 20200819
  Receipt Date: 20200819
  Transmission Date: 20201103
  Serious: Yes (Hospitalization)
  Sender: FDA-Public Use
  Company Number: NVSC2020GB109263

PATIENT
  Age: 9 Year
  Sex: Female

DRUGS (2)
  1. SOMATROPIN. [Suspect]
     Active Substance: SOMATROPIN
     Indication: PRODUCT USED FOR UNKNOWN INDICATION
     Dosage: UNK
     Route: 065
  2. SOMATROPIN. [Suspect]
     Active Substance: SOMATROPIN
     Dosage: DAILY
     Route: 065

REACTIONS (8)
  - Injection site discomfort [Unknown]
  - Product dose omission issue [Unknown]
  - Injection site bruising [Unknown]
  - Spinal deformity [Unknown]
  - Seizure [Recovered/Resolved]
  - Malaise [Unknown]
  - Injection site haemorrhage [Unknown]
  - Rib deformity [Unknown]

NARRATIVE: CASE EVENT DATE: 20200423
